FAERS Safety Report 8440872-7 (Version None)
Quarter: 2012Q2

REPORT INFORMATION
  Report Type: 
  Country: None (occurrence: None)
  Receive Date: 20120615
  Receipt Date: 20110512
  Transmission Date: 20120825
  Serious: No
  Sender: FDA-Public Use
  Company Number: US-NOVEN-11US002439

PATIENT
  Sex: Female

DRUGS (4)
  1. ALBUTEROL [Concomitant]
     Indication: ASTHMA
     Route: 050
  2. DAYTRANA [Suspect]
     Indication: PRODUCT USED FOR UNKNOWN INDICATION
     Dosage: 15 MG, QD
     Route: 062
     Dates: start: 20110301
  3. FLONASE [Concomitant]
     Indication: HYPERSENSITIVITY
     Route: 045
  4. FLOVENT [Concomitant]
     Indication: ASTHMA
     Route: 050

REACTIONS (2)
  - IMPAIRED HEALING [None]
  - APPLICATION SITE HAEMATOMA [None]
